FAERS Safety Report 16802782 (Version 1)
Quarter: 2019Q3

REPORT INFORMATION
  Report Type: Report from Study
  Country: None (occurrence: FR)
  Receive Date: 20190912
  Receipt Date: 20190912
  Transmission Date: 20191005
  Serious: Yes (Other)
  Sender: FDA-Public Use
  Company Number: FR-ABBVIE-17K-056-2061921-00

PATIENT
  Age: 47 Year
  Sex: Male
  Weight: 80 kg

DRUGS (2)
  1. HUMIRA [Suspect]
     Active Substance: ADALIMUMAB
     Indication: PSORIASIS
     Route: 058
     Dates: start: 2017, end: 20170711
  2. COVERSYL [Concomitant]
     Active Substance: PERINDOPRIL
     Indication: PRODUCT USED FOR UNKNOWN INDICATION
     Dates: start: 2010

REACTIONS (4)
  - Cutaneous T-cell lymphoma [Not Recovered/Not Resolved]
  - Cutaneous T-cell lymphoma [Unknown]
  - Muscle spasms [Not Recovered/Not Resolved]
  - Tooth infection [Recovered/Resolved]

NARRATIVE: CASE EVENT DATE: 201705
